FAERS Safety Report 21514787 (Version 2)
Quarter: 2022Q4

REPORT INFORMATION
  Report Type: Spontaneous
  Country: ZA (occurrence: ZA)
  Receive Date: 20221027
  Receipt Date: 20221116
  Transmission Date: 20230113
  Serious: Yes (Hospitalization, Other)
  Sender: FDA-Public Use
  Company Number: ZA-009507513-2210ZAF008703

PATIENT
  Age: 63 Year
  Sex: Male
  Weight: 94.4 kg

DRUGS (3)
  1. KEYTRUDA [Suspect]
     Active Substance: PEMBROLIZUMAB
     Dosage: UNK UNK, Q3W
     Route: 042
     Dates: start: 20220823, end: 20220823
  2. KEYTRUDA [Suspect]
     Active Substance: PEMBROLIZUMAB
     Dosage: UNK
     Route: 042
     Dates: start: 20220914, end: 20220914
  3. KEYTRUDA [Suspect]
     Active Substance: PEMBROLIZUMAB
     Dosage: UNK
     Route: 042
     Dates: start: 20221005, end: 20221005

REACTIONS (3)
  - Pericardial effusion [Unknown]
  - Tuberculosis [Unknown]
  - Product use issue [Unknown]

NARRATIVE: CASE EVENT DATE: 20220914
